FAERS Safety Report 24725285 (Version 1)
Quarter: 2024Q4

REPORT INFORMATION
  Report Type: Report from Study
  Country: GB (occurrence: GB)
  Receive Date: 20241212
  Receipt Date: 20241212
  Transmission Date: 20250114
  Serious: Yes (Hospitalization, Other)
  Sender: AMGEN
  Company Number: GB-AMGEN-GBRSL2024113374

PATIENT
  Age: 72 Year
  Sex: Male

DRUGS (2)
  1. ADALIMUMAB [Suspect]
     Active Substance: ADALIMUMAB
     Indication: Ankylosing spondylitis
     Dosage: 40 MILLIGRAM, Q2WK
     Route: 065
     Dates: start: 20230126
  2. ADALIMUMAB [Suspect]
     Active Substance: ADALIMUMAB
     Indication: Spinal osteoarthritis
     Dosage: 40 MILLIGRAM, Q2WK
     Route: 065

REACTIONS (12)
  - Type 2 diabetes mellitus [Unknown]
  - Cardiac disorder [Unknown]
  - Weight increased [Unknown]
  - Lower respiratory tract infection [Unknown]
  - Injection site pruritus [Recovered/Resolved]
  - Discomfort [Unknown]
  - Nasopharyngitis [Not Recovered/Not Resolved]
  - Tooth extraction [Unknown]
  - Fluid retention [Unknown]
  - Weight decreased [Unknown]
  - Injection site inflammation [Unknown]
  - Injection site haemorrhage [Unknown]

NARRATIVE: CASE EVENT DATE: 20240201
